FAERS Safety Report 5050532-0 (Version None)
Quarter: 2006Q3

REPORT INFORMATION
  Report Type: 
  Country: None (occurrence: None)
  Receive Date: 20060707
  Receipt Date: 20060622
  Transmission Date: 20061208
  Serious: Yes (Hospitalization)
  Sender: FDA-Public Use
  Company Number: DSA_28382_2006

PATIENT
  Age: 47 Year
  Sex: Female

DRUGS (2)
  1. TAVOR [Suspect]
     Dosage: 80 MG ONCE PO
     Route: 048
     Dates: start: 20060622, end: 20060622
  2. DRAIN PIPE CLEANER [Suspect]
     Dosage: 5 ML ONCE
     Dates: start: 20060622, end: 20060622

REACTIONS (3)
  - ABDOMINAL PAIN UPPER [None]
  - INTENTIONAL OVERDOSE [None]
  - SUICIDE ATTEMPT [None]
